FAERS Safety Report 9507404 (Version 2)
Quarter: 2013Q3

REPORT INFORMATION
  Report Type: Spontaneous
  Country: CA (occurrence: CA)
  Receive Date: 20130909
  Receipt Date: 20130912
  Transmission Date: 20140515
  Serious: Yes (Other)
  Sender: FDA-Public Use
  Company Number: CA-COVIDIEN/TYCO HEALTHCARE/MALLINCKRODT-T201304250

PATIENT
  Age: 79 Year
  Sex: Female

DRUGS (3)
  1. PENNSAID TOPICAL [Suspect]
     Indication: ARTHRALGIA
     Dosage: 50 GTT, UNK
     Route: 061
     Dates: start: 2013
  2. PENNSAID TOPICAL [Suspect]
     Dosage: 25 DROPS BID
     Route: 061
     Dates: start: 2013, end: 2013
  3. LIPID MODIFYING AGENTS [Concomitant]
     Indication: BLOOD CHOLESTEROL INCREASED

REACTIONS (2)
  - Muscle spasms [Recovered/Resolved]
  - Off label use [Recovered/Resolved]
